FAERS Safety Report 9124564 (Version 2)
Quarter: 2013Q1

REPORT INFORMATION
  Report Type: Spontaneous
  Country: IN (occurrence: IN)
  Receive Date: 20130227
  Receipt Date: 20130304
  Transmission Date: 20140127
  Serious: Yes (Other)
  Sender: FDA-Public Use
  Company Number: IN-ELI_LILLY_AND_COMPANY-IN201302006159

PATIENT
  Age: 28 Year
  Sex: Female

DRUGS (2)
  1. HUMALOG LISPRO [Suspect]
     Indication: GESTATIONAL DIABETES
     Dosage: 4 U, TID
     Dates: start: 20130217
  2. METFORMIN [Concomitant]
     Dosage: 500 MG, TID

REACTIONS (1)
  - Exposure during pregnancy [Recovered/Resolved]
